FAERS Safety Report 12759846 (Version 1)
Quarter: 2016Q3

REPORT INFORMATION
  Report Type: Spontaneous
  Country: US (occurrence: US)
  Receive Date: 20160919
  Receipt Date: 20160919
  Transmission Date: 20161109
  Serious: Yes (Hospitalization, Other)
  Sender: FDA-Public Use
  Company Number: US-009507513-1102USA02267

PATIENT
  Sex: Female
  Weight: 72.58 kg

DRUGS (10)
  1. PROVERA [Concomitant]
     Active Substance: MEDROXYPROGESTERONE ACETATE
     Indication: HORMONE REPLACEMENT THERAPY
     Dosage: DAYS 16-25
     Route: 048
  2. LIPITOR [Concomitant]
     Active Substance: ATORVASTATIN CALCIUM
     Indication: HYPERCHOLESTEROLAEMIA
     Dosage: 10 MG, QD
     Route: 048
  3. FOSAMAX [Suspect]
     Active Substance: ALENDRONATE SODIUM
     Dosage: 70 MG, QW
     Route: 048
     Dates: start: 20080902
  4. VITAMINS (UNSPECIFIED) [Concomitant]
     Active Substance: VITAMINS
     Route: 048
  5. FOSAMAX [Suspect]
     Active Substance: ALENDRONATE SODIUM
     Dosage: 70 MG, QW
     Route: 048
     Dates: start: 20050701, end: 200907
  6. FOSAMAX [Suspect]
     Active Substance: ALENDRONATE SODIUM
     Dosage: 70 MG, QW
     Route: 048
     Dates: start: 20080407, end: 20080702
  7. FOSAMAX [Suspect]
     Active Substance: ALENDRONATE SODIUM
     Indication: OSTEOPOROSIS
     Dosage: 10 MG, QD
     Route: 048
     Dates: start: 199908, end: 2005
  8. PREMARIN [Concomitant]
     Active Substance: ESTROGENS, CONJUGATED
     Indication: OESTROGEN REPLACEMENT THERAPY
     Dosage: DAYS 1-25
     Route: 048
     Dates: end: 2003
  9. PROZAC [Concomitant]
     Active Substance: FLUOXETINE HYDROCHLORIDE
     Indication: DEPRESSION
     Dosage: 20 MG, QD
     Route: 048
     Dates: start: 1998
  10. LIPITOR [Concomitant]
     Active Substance: ATORVASTATIN CALCIUM
     Indication: HYPERLIPIDAEMIA

REACTIONS (86)
  - Femur fracture [Recovered/Resolved]
  - Femur fracture [Unknown]
  - Vitamin D deficiency [Unknown]
  - Herpes zoster [Unknown]
  - Urinary tract infection [Unknown]
  - Fall [Unknown]
  - Fall [Unknown]
  - Fall [Unknown]
  - Contusion [Unknown]
  - Liver function test increased [Unknown]
  - Tooth disorder [Unknown]
  - Fracture nonunion [Unknown]
  - Bone loss [Unknown]
  - Fall [Unknown]
  - Seroma [Recovered/Resolved]
  - Foot fracture [Unknown]
  - Herpes zoster [Unknown]
  - Mammogram abnormal [Unknown]
  - Osteoarthritis [Unknown]
  - Marrow hyperplasia [Unknown]
  - Contusion [Unknown]
  - Dacryostenosis acquired [Unknown]
  - Fibrocystic breast disease [Unknown]
  - Fall [Unknown]
  - Tooth disorder [Unknown]
  - Pain in extremity [Unknown]
  - Myositis [Unknown]
  - Treatment noncompliance [Not Recovered/Not Resolved]
  - Arthropathy [Unknown]
  - Retinal disorder [Unknown]
  - Breast disorder [Unknown]
  - Fracture [Unknown]
  - Plantar fasciitis [Unknown]
  - Fall [Unknown]
  - Meniscus injury [Unknown]
  - Hernia [Unknown]
  - Hypertension [Unknown]
  - Fall [Unknown]
  - Contusion [Unknown]
  - Sinus disorder [Unknown]
  - Ear disorder [Unknown]
  - Osteopenia [Unknown]
  - Ligament sprain [Unknown]
  - Rotator cuff syndrome [Unknown]
  - Bone marrow failure [Unknown]
  - Femur fracture [Recovered/Resolved]
  - Adverse event [Unknown]
  - Headache [Unknown]
  - Palpitations [Unknown]
  - Blood pressure increased [Unknown]
  - Gallbladder disorder [Unknown]
  - Cataract [Unknown]
  - Tooth disorder [Unknown]
  - Tooth disorder [Unknown]
  - Back pain [Unknown]
  - Pain in extremity [Unknown]
  - Joint swelling [Unknown]
  - Tooth disorder [Not Recovered/Not Resolved]
  - Calcium deficiency [Unknown]
  - Laceration [Unknown]
  - Osteopenia [Unknown]
  - Balance disorder [Unknown]
  - Anisocytosis [Unknown]
  - Hepatic steatosis [Unknown]
  - Scoliosis [Unknown]
  - Incisional hernia [Unknown]
  - Cardiovascular insufficiency [Unknown]
  - Arthritis [Unknown]
  - Dental caries [Unknown]
  - Arthralgia [Unknown]
  - Limb injury [Unknown]
  - Tooth abscess [Unknown]
  - Visual acuity reduced [Unknown]
  - Tooth abscess [Unknown]
  - Musculoskeletal pain [Unknown]
  - Hyponatraemia [Unknown]
  - Gastrointestinal disorder [Unknown]
  - Gastrooesophageal reflux disease [Unknown]
  - Dizziness [Unknown]
  - Muscle strain [Unknown]
  - Osteoarthritis [Unknown]
  - Spinal osteoarthritis [Unknown]
  - Lower limb fracture [Unknown]
  - Hip fracture [Unknown]
  - Weight increased [Unknown]
  - Anaemia postoperative [Unknown]

NARRATIVE: CASE EVENT DATE: 2000
